FAERS Safety Report 7339422-8 (Version None)
Quarter: 2011Q1

REPORT INFORMATION
  Report Type: 
  Country: None (occurrence: None)
  Receive Date: 20110308
  Receipt Date: 20101223
  Transmission Date: 20110831
  Serious: No
  Sender: FDA-Public Use
  Company Number: US-AMGEN-USASP2010011067

PATIENT
  Age: 83 Year
  Sex: Female

DRUGS (13)
  1. PEPCID [Concomitant]
  2. PROLIA [Suspect]
     Indication: OSTEOPOROSIS POSTMENOPAUSAL
     Dates: start: 20101027
  3. QUINAPRIL [Concomitant]
  4. CALCIUM [Concomitant]
  5. PREDNISONE TAB [Concomitant]
  6. LEUCOVORIN                         /00566701/ [Concomitant]
  7. DILTIAZEM [Concomitant]
  8. METHOTREXATE [Concomitant]
  9. SIMVASTATIN [Concomitant]
  10. TOLECTIN [Concomitant]
  11. LASIX [Concomitant]
  12. NEURONTIN [Concomitant]
  13. CLONIDINE [Concomitant]

REACTIONS (1)
  - RASH VESICULAR [None]
